FAERS Safety Report 18516118 (Version 1)
Quarter: 2020Q4

REPORT INFORMATION
  Report Type: Spontaneous
  Country: US (occurrence: US)
  Receive Date: 20201117
  Receipt Date: 20201117
  Transmission Date: 20210114
  Serious: No
  Sender: FDA-Public Use
  Company Number: None

PATIENT
  Age: 18 Year
  Sex: Female
  Weight: 70.31 kg

DRUGS (5)
  1. UNISOM TABLETS [Concomitant]
  2. ALBUTEROL INHALER [Concomitant]
     Active Substance: ALBUTEROL
  3. EXTRA STRENGTH PAIN RELIEVER [Concomitant]
     Active Substance: ACETAMINOPHEN
  4. NEXPLANON [Suspect]
     Active Substance: ETONOGESTREL
     Dates: start: 20191126
  5. SINGULAIR [Concomitant]
     Active Substance: MONTELUKAST SODIUM

REACTIONS (4)
  - Blindness transient [None]
  - Nausea [None]
  - Fatigue [None]
  - Dizziness [None]

NARRATIVE: CASE EVENT DATE: 20200514
